FAERS Safety Report 11784681 (Version 1)
Quarter: 2015Q4

REPORT INFORMATION
  Report Type: Spontaneous
  Country: US (occurrence: US)
  Receive Date: 20151130
  Receipt Date: 20151130
  Transmission Date: 20160305
  Serious: Yes (Other)
  Sender: FDA-Public Use
  Company Number: US-TEVA-613245ACC

PATIENT
  Age: 22 Year
  Sex: Female
  Weight: 85.35 kg

DRUGS (1)
  1. PARAGARD T 380A [Suspect]
     Active Substance: COPPER
     Indication: CONTRACEPTION
     Dates: start: 20150922, end: 20151117

REACTIONS (5)
  - Vulvovaginal pain [Unknown]
  - Dyspareunia [Unknown]
  - Device dislocation [Recovered/Resolved]
  - Vaginal infection [Unknown]
  - Vaginal odour [Unknown]

NARRATIVE: CASE EVENT DATE: 20151117
